FAERS Safety Report 25469010 (Version 3)
Quarter: 2025Q3

REPORT INFORMATION
  Report Type: Report from Study
  Country: US (occurrence: US)
  Receive Date: 20250623
  Receipt Date: 20250707
  Transmission Date: 20251020
  Serious: Yes (Hospitalization)
  Sender: ALNYLAM PHARMACEUTICALS
  Company Number: US-ALNYLAM PHARMACEUTICALS, INC.-ALN-2025-003889

PATIENT

DRUGS (2)
  1. GIVLAARI [Suspect]
     Active Substance: GIVOSIRAN SODIUM
     Indication: Porphyria acute
     Route: 065
     Dates: start: 20200716, end: 20200716
  2. GIVLAARI [Suspect]
     Active Substance: GIVOSIRAN SODIUM
     Route: 058
     Dates: start: 20250221, end: 20250221

REACTIONS (6)
  - Porphyria acute [Unknown]
  - Gastrointestinal disorder [Unknown]
  - Diarrhoea [Unknown]
  - Vomiting [Unknown]
  - Dehydration [Unknown]
  - Electrolyte imbalance [Unknown]
